FAERS Safety Report 9524175 (Version 1)
Quarter: 2013Q3

REPORT INFORMATION
  Report Type: Spontaneous
  Country: US (occurrence: None)
  Receive Date: 20130912
  Receipt Date: 20130912
  Transmission Date: 20140515
  Serious: Yes (Death, Life-Threatening)
  Sender: FDA-Public Use
  Company Number: SYM-2013-10492

PATIENT
  Age: 45 Year
  Sex: Male

DRUGS (9)
  1. XENAZINE (TETRABENAZINE) (TETRABENAZINE) [Suspect]
     Indication: HUNTINGTON^S DISEASE
     Dosage: 25 MG TWICE DAILY AND 12.5 MG DAILY IN AFTERNOON
     Route: 048
     Dates: start: 2013
  2. AMBIEN (ZOLPIDEM TARTRATE) (ZOLPIDEM TARTRATE) [Concomitant]
  3. LORAZEPAM (LORAZEPAM) (LORAZEPAM) [Concomitant]
  4. CLINDAMYCIN [Concomitant]
  5. TYLENOL (PARACETAMOL) [Concomitant]
  6. FENTANYL (FENTANYL) (FENTANYL) [Concomitant]
  7. MIRTAZAPINE (MIRTAZAPINE) (MIRTAZAPINE) [Concomitant]
  8. MULTIVITAMINS (MULTIVITAMINS) (ERGOCALCIFEROL, ASCORBIC ACID, FOLIC ACID, THIAMINE HYDROCHLORIDE, RETINOL, RIBOFLAVIN, NICOTINAMIDE, PANTHENOL) [Concomitant]
  9. HALDOL (HALOPERIDOL) [Concomitant]

REACTIONS (1)
  - Death [None]
